FAERS Safety Report 4417216-0 (Version None)
Quarter: 2004Q3

REPORT INFORMATION
  Report Type: 
  Country: None (occurrence: None)
  Receive Date: 20040806
  Receipt Date: 20040406
  Transmission Date: 20050211
  Serious: Yes (Hospitalization)
  Sender: FDA-Public Use
  Company Number: US-ROCHE-364013

PATIENT
  Age: 66 Year
  Sex: Male
  Weight: 63.5 kg

DRUGS (8)
  1. CAPECITABINE [Suspect]
     Route: 048
     Dates: start: 20040308, end: 20040331
  2. CAPECITABINE [Suspect]
     Dosage: INTERMITTENT THERAPY OF 14 DAYS TREATMENT AND 7 DAYS REST
     Route: 048
     Dates: start: 20040705, end: 20040718
  3. OXYCONTIN [Concomitant]
  4. MARINOL [Concomitant]
  5. REGLAN [Concomitant]
  6. COMPAZINE [Concomitant]
  7. PANCREASE [Concomitant]
  8. PROTONIX [Concomitant]

REACTIONS (15)
  - ASCITES [None]
  - ASTHENIA [None]
  - BENIGN PROSTATIC HYPERPLASIA [None]
  - BILIARY DILATATION [None]
  - CACHEXIA [None]
  - COMPUTERISED TOMOGRAM ABDOMEN ABNORMAL [None]
  - DEHYDRATION [None]
  - HAEMOGLOBIN ABNORMAL [None]
  - HAEMOGLOBIN DECREASED [None]
  - HYPERGLYCAEMIA [None]
  - HYPERNATRAEMIA [None]
  - HYPOTENSION [None]
  - NAUSEA [None]
  - RESPIRATORY RATE INCREASED [None]
  - TACHYCARDIA [None]
